FAERS Safety Report 15349065 (Version 3)
Quarter: 2018Q4

REPORT INFORMATION
  Report Type: Report from Study
  Country: US (occurrence: US)
  Receive Date: 20180904
  Receipt Date: 20181004
  Transmission Date: 20190204
  Serious: Yes (Other)
  Sender: FDA-Public Use
  Company Number: PHHO2018US009662

PATIENT
  Age: 59 Year
  Sex: Female
  Weight: 89 kg

DRUGS (6)
  1. ARTHROTEC [Concomitant]
     Active Substance: DICLOFENAC SODIUM\MISOPROSTOL
     Indication: BACK PAIN
  2. CELEBREX [Concomitant]
     Active Substance: CELECOXIB
     Indication: BACK PAIN
  3. CELEBREX [Concomitant]
     Active Substance: CELECOXIB
     Indication: ARTHRALGIA
     Dosage: 100 MG, QD
     Route: 065
     Dates: start: 20180222, end: 20180617
  4. AIN457 [Suspect]
     Active Substance: SECUKINUMAB
     Indication: ANKYLOSING SPONDYLITIS
     Dosage: 150 MG, UNK
     Route: 058
     Dates: start: 20180517, end: 20180614
  5. ARTHROTEC [Concomitant]
     Active Substance: DICLOFENAC SODIUM\MISOPROSTOL
     Indication: ARTHRALGIA
     Dosage: 75/200 MG, BID
     Route: 048
     Dates: start: 20180118
  6. NO TREATMENT RECEIVED [Suspect]
     Active Substance: UNSPECIFIED INGREDIENT
     Indication: ANKYLOSING SPONDYLITIS
     Dosage: NO TREATMENT
     Route: 065

REACTIONS (1)
  - Back pain [Recovered/Resolved]

NARRATIVE: CASE EVENT DATE: 20180517
